FAERS Safety Report 6697000-8 (Version None)
Quarter: 2010Q2

REPORT INFORMATION
  Report Type: 
  Country: None (occurrence: None)
  Receive Date: 20100426
  Receipt Date: 20100420
  Transmission Date: 20101027
  Serious: Yes (Hospitalization)
  Sender: FDA-Public Use
  Company Number: IT-BRISTOL-MYERS SQUIBB COMPANY-15074149

PATIENT
  Sex: Male

DRUGS (2)
  1. CISPLATIN [Suspect]
  2. ETOPOSIDE [Suspect]

REACTIONS (2)
  - FEBRILE NEUTROPENIA [None]
  - PNEUMONITIS [None]
